FAERS Safety Report 7135283-0 (Version None)
Quarter: 2010Q4

REPORT INFORMATION
  Report Type: 
  Country: None (occurrence: None)
  Receive Date: 20101203
  Receipt Date: 20101129
  Transmission Date: 20110411
  Serious: Yes (Other)
  Sender: FDA-Public Use
  Company Number: A0896735A

PATIENT
  Age: 15 Year
  Sex: Female

DRUGS (2)
  1. ADVAIR [Suspect]
     Indication: ASTHMA
     Dosage: 1PUFF PER DAY
     Route: 055
     Dates: start: 20000101, end: 20101001
  2. ALBUTEROL [Concomitant]

REACTIONS (7)
  - ARTHRALGIA [None]
  - CATARACT [None]
  - INTRAOCULAR PRESSURE INCREASED [None]
  - MUSCULOSKELETAL PAIN [None]
  - MYALGIA [None]
  - PSYCHOMOTOR HYPERACTIVITY [None]
  - VISION BLURRED [None]
